FAERS Safety Report 15477946 (Version 2)
Quarter: 2018Q4

REPORT INFORMATION
  Report Type: Spontaneous
  Country: US (occurrence: US)
  Receive Date: 20181009
  Receipt Date: 20181011
  Transmission Date: 20190205
  Serious: Yes (Hospitalization)
  Sender: FDA-Public Use
  Company Number: US-ROCHE-2194368

PATIENT
  Sex: Female

DRUGS (5)
  1. LIPITOR [Concomitant]
     Active Substance: ATORVASTATIN CALCIUM
  2. METOPROLOL. [Concomitant]
     Active Substance: METOPROLOL
  3. LASIX [Concomitant]
     Active Substance: FUROSEMIDE
  4. GENTAMICIN. [Concomitant]
     Active Substance: GENTAMICIN
  5. ESBRIET [Suspect]
     Active Substance: PIRFENIDONE
     Indication: IDIOPATHIC PULMONARY FIBROSIS
     Route: 048
     Dates: start: 20160609

REACTIONS (2)
  - Cardiac disorder [Unknown]
  - Dyspnoea [Unknown]
